FAERS Safety Report 22363707 (Version 2)
Quarter: 2023Q2

REPORT INFORMATION
  Report Type: Report from Study
  Country: US (occurrence: US)
  Receive Date: 20230525
  Receipt Date: 20230529
  Transmission Date: 20230722
  Serious: No
  Sender: FDA-Public Use
  Company Number: US-002147023-NVSC2023US117205

PATIENT
  Sex: Female
  Weight: 108.84 kg

DRUGS (7)
  1. CLINDAMYCIN [Suspect]
     Active Substance: CLINDAMYCIN
     Indication: Ovarian cyst
     Dosage: UNK
     Route: 065
  2. ALBUTEROL SULFATE [Suspect]
     Active Substance: ALBUTEROL SULFATE
     Indication: Ovarian cyst
     Dosage: UNK
     Route: 065
  3. TRETINOIN [Suspect]
     Active Substance: TRETINOIN
     Indication: Ovarian cyst
     Dosage: UNK
     Route: 065
  4. DOXYCYCLINE [Suspect]
     Active Substance: DOXYCYCLINE
     Indication: Ovarian cyst
     Dosage: UNK
     Route: 065
  5. ESCITALOPRAM [Suspect]
     Active Substance: ESCITALOPRAM OXALATE
     Indication: Ovarian cyst
     Dosage: UNK
     Route: 065
  6. FAMOTIDINE [Suspect]
     Active Substance: FAMOTIDINE
     Indication: Ovarian cyst
     Dosage: UNK
     Route: 065
  7. SPIRONOLACTONE [Suspect]
     Active Substance: SPIRONOLACTONE
     Indication: Ovarian cyst
     Dosage: UNK
     Route: 065

REACTIONS (9)
  - Hidradenitis [Unknown]
  - Acne [Unknown]
  - Papule [Unknown]
  - Pustule [Unknown]
  - Hyperhidrosis [Unknown]
  - Arthropod bite [Unknown]
  - Keloid scar [Unknown]
  - Lipoma [Unknown]
  - Drug ineffective for unapproved indication [Unknown]
